FAERS Safety Report 4559556-0 (Version None)
Quarter: 2005Q1

REPORT INFORMATION
  Report Type: 
  Country: None (occurrence: None)
  Receive Date: 20050119
  Receipt Date: 20050107
  Transmission Date: 20050727
  Serious: Yes (Death)
  Sender: FDA-Public Use
  Company Number: 2005008031

PATIENT
  Age: 53 Year
  Sex: Male
  Weight: 80 kg

DRUGS (2)
  1. NORVASC [Suspect]
     Indication: HYPERTENSION
     Dosage: 5 MG, ORAL
     Route: 048
     Dates: start: 20031127, end: 20041228
  2. LOSARTAN POTASSIUM [Concomitant]

REACTIONS (2)
  - EPISTAXIS [None]
  - MYOCARDIAL INFARCTION [None]
